FAERS Safety Report 16935254 (Version 2)
Quarter: 2021Q3

REPORT INFORMATION
  Report Type: Spontaneous
  Country: CA (occurrence: CA)
  Receive Date: 20191018
  Receipt Date: 20210722
  Transmission Date: 20211014
  Serious: Yes (Hospitalization)
  Sender: FDA-Public Use
  Company Number: CA-ROCHE-2433354

PATIENT
  Age: 75 Year
  Sex: Female

DRUGS (13)
  1. FENTANYL. [Suspect]
     Active Substance: FENTANYL
     Indication: PRODUCT USED FOR UNKNOWN INDICATION
     Route: 065
  2. SULFASALAZINE. [Concomitant]
     Active Substance: SULFASALAZINE
  3. ACTEMRA [Suspect]
     Active Substance: TOCILIZUMAB
     Route: 058
  4. PREDNISONE. [Concomitant]
     Active Substance: PREDNISONE
  5. ACTEMRA [Suspect]
     Active Substance: TOCILIZUMAB
     Indication: RHEUMATOID ARTHRITIS
     Route: 042
  6. ACTEMRA [Suspect]
     Active Substance: TOCILIZUMAB
     Indication: RHEUMATOID ARTHRITIS
     Route: 058
  7. SANDOSTATIN [Concomitant]
     Active Substance: OCTREOTIDE ACETATE
  8. AMLODIPINE [Concomitant]
     Active Substance: AMLODIPINE BESYLATE
  9. ATACAND [Concomitant]
     Active Substance: CANDESARTAN CILEXETIL
  10. ACTEMRA [Suspect]
     Active Substance: TOCILIZUMAB
     Indication: RHEUMATOID ARTHRITIS
     Route: 065
  11. ARAVA [Concomitant]
     Active Substance: LEFLUNOMIDE
  12. CELEBREX [Concomitant]
     Active Substance: CELECOXIB
  13. OXYCODONE HYDROCHLORIDE. [Concomitant]
     Active Substance: OXYCODONE HYDROCHLORIDE

REACTIONS (8)
  - Limb injury [Not Recovered/Not Resolved]
  - Wound [Not Recovered/Not Resolved]
  - Cellulitis [Not Recovered/Not Resolved]
  - Localised infection [Not Recovered/Not Resolved]
  - Arthralgia [Not Recovered/Not Resolved]
  - Arthritis [Not Recovered/Not Resolved]
  - Constipation [Not Recovered/Not Resolved]
  - Heart rate increased [Not Recovered/Not Resolved]
